FAERS Safety Report 24209561 (Version 1)
Quarter: 2024Q3

REPORT INFORMATION
  Report Type: Report from Study
  Country: DE (occurrence: DE)
  Receive Date: 20240814
  Receipt Date: 20240814
  Transmission Date: 20241017
  Serious: Yes (Other)
  Sender: PFIZER
  Company Number: DE-PFIZER INC-202400233694

PATIENT
  Age: 10 Year
  Sex: Female

DRUGS (7)
  1. CRIZOTINIB [Suspect]
     Active Substance: CRIZOTINIB
     Indication: Anaplastic large cell lymphoma T- and null-cell types
     Dosage: 320 MG/M2
     Route: 048
  2. VINBLASTINE [Suspect]
     Active Substance: VINBLASTINE
     Dosage: 5 MG/M2 PER WEEK
  3. VINBLASTINE [Suspect]
     Active Substance: VINBLASTINE
     Dosage: 6 MG/M2 PER WEEK
  4. DEXAMETHASONE [Concomitant]
     Active Substance: DEXAMETHASONE
     Indication: Disease progression
     Dosage: 10 MG/M2, DAIL, 5 DAYS EVERY 4 WEEKS
  5. METHOTREXATE [Concomitant]
     Active Substance: METHOTREXATE
  6. CYTARABINE [Concomitant]
     Active Substance: CYTARABINE
  7. PREDNISOLONE [Concomitant]
     Active Substance: PREDNISOLONE

REACTIONS (4)
  - Colitis [Unknown]
  - Neutropenia [Unknown]
  - Febrile neutropenia [Unknown]
  - Polyneuropathy [Unknown]
